FAERS Safety Report 6599972-9 (Version None)
Quarter: 2010Q1

REPORT INFORMATION
  Report Type: 
  Country: None (occurrence: None)
  Receive Date: 20100217
  Receipt Date: 20100209
  Transmission Date: 20100710
  Serious: Yes (Death)
  Sender: FDA-Public Use
  Company Number: 2010US000448

PATIENT
  Age: 57 Year
  Sex: Female

DRUGS (3)
  1. PROGRAF [Suspect]
     Indication: PROPHYLAXIS AGAINST GRAFT VERSUS HOST DISEASE
  2. AMEVIVE [Suspect]
     Indication: GRAFT VERSUS HOST DISEASE
     Dosage: 7.5 MG, WEEKLY, IV NOS
     Route: 042
  3. METHYLPREDNISOLONE [Concomitant]

REACTIONS (3)
  - LEUKAEMIA RECURRENT [None]
  - T-CELL TYPE ACUTE LEUKAEMIA [None]
  - TREATMENT FAILURE [None]
